FAERS Safety Report 7236588-5 (Version None)
Quarter: 2011Q1

REPORT INFORMATION
  Report Type: 
  Country: None (occurrence: None)
  Receive Date: 20110112
  Receipt Date: 20101221
  Transmission Date: 20110831
  Serious: Yes (Other)
  Sender: FDA-Public Use
  Company Number: 2011-0074

PATIENT
  Age: 69 Year
  Sex: Female

DRUGS (1)
  1. APO-GO PFS (APO-GO) (APOMORPHINE HYDROCHLORIDE) (APOMORPHINE HYDROCHLO [Suspect]
     Indication: PRODUCT USED FOR UNKNOWN INDICATION
     Dosage: (CONTINUOUS INJECTION), SUBCUTANEOUS
     Route: 058
     Dates: start: 20101122, end: 20101220

REACTIONS (5)
  - NODULE [None]
  - PRURITUS [None]
  - MENTAL DISORDER [None]
  - PSYCHOTIC DISORDER [None]
  - STRESS [None]
